FAERS Safety Report 9009466 (Version 3)
Quarter: 2013Q3

REPORT INFORMATION
  Report Type: Report from Study
  Country: AU (occurrence: AU)
  Receive Date: 20130110
  Receipt Date: 20130821
  Transmission Date: 20140515
  Serious: Yes (Death, Other)
  Sender: FDA-Public Use
  Company Number: AU-ROCHE-1178288

PATIENT
  Age: 53 Year
  Sex: Male

DRUGS (3)
  1. AVASTIN [Suspect]
     Indication: GLIOBLASTOMA
     Dosage: 100MG/4ML
     Route: 042
     Dates: start: 20120803
  2. CARBOPLATIN [Concomitant]
     Indication: GLIOBLASTOMA
     Dosage: 01/JUN/2012
     Route: 042
  3. ETOPOSIDE [Concomitant]
     Indication: GLIOBLASTOMA
     Dosage: 01/JUN/2012
     Route: 048

REACTIONS (2)
  - Death [Fatal]
  - Disease progression [Unknown]
